FAERS Safety Report 6110459-X (Version None)
Quarter: 2009Q1

REPORT INFORMATION
  Report Type: 
  Country: None (occurrence: None)
  Receive Date: 20090310
  Receipt Date: 20090210
  Transmission Date: 20090719
  Serious: Yes (Other)
  Sender: FDA-Public Use
  Company Number: ES-AMGEN-UK337035

PATIENT
  Sex: Male

DRUGS (1)
  1. ARANESP [Suspect]
     Route: 064
     Dates: end: 20070618

REACTIONS (1)
  - PYLORIC STENOSIS [None]
